FAERS Safety Report 21801371 (Version 1)
Quarter: 2022Q4

REPORT INFORMATION
  Report Type: Spontaneous
  Country: US (occurrence: None)
  Receive Date: 20221230
  Receipt Date: 20221230
  Transmission Date: 20230113
  Serious: Yes (Other)
  Sender: FDA-Public Use
  Company Number: 2022A382786

PATIENT
  Age: 19337 Day
  Sex: Female
  Weight: 95.3 kg

DRUGS (1)
  1. EVUSHELD [Suspect]
     Active Substance: CILGAVIMAB\TIXAGEVIMAB
     Indication: COVID-19 prophylaxis
     Dosage: 300 MG OF TIXAGEVIMAB AND 300 MG OF CILGAVIMAB, ADMINISTERED AS TWO SEPARATE CONSECUTIVE INTRAMUS...
     Route: 030
     Dates: start: 20221116

REACTIONS (6)
  - Urticaria [Unknown]
  - Eye swelling [Unknown]
  - Mouth swelling [Unknown]
  - Pharyngeal swelling [Unknown]
  - Pruritus [Unknown]
  - Rash [Unknown]

NARRATIVE: CASE EVENT DATE: 20221116
